FAERS Safety Report 4426854-0 (Version None)
Quarter: 2004Q3

REPORT INFORMATION
  Report Type: 
  Country: None (occurrence: None)
  Receive Date: 20040816
  Receipt Date: 20040806
  Transmission Date: 20050211
  Serious: Yes (Other)
  Sender: FDA-Public Use
  Company Number: PHEH2004US08666

PATIENT
  Age: 89 Year
  Sex: Female

DRUGS (4)
  1. LAMISIL [Suspect]
     Indication: TINEA CAPITIS
     Dosage: 250 MG, QD
     Route: 048
     Dates: start: 20040514, end: 20040528
  2. LISINOPRIL [Concomitant]
     Dosage: 10 MG, QD
     Route: 048
  3. FLEXERIL [Concomitant]
  4. TYLENOL [Concomitant]

REACTIONS (1)
  - VITREOUS FLOATERS [None]
